FAERS Safety Report 8232595-4 (Version None)
Quarter: 2012Q1

REPORT INFORMATION
  Report Type: 
  Country: None (occurrence: None)
  Receive Date: 20120323
  Receipt Date: 20120321
  Transmission Date: 20120608
  Serious: Yes (Life-Threatening)
  Sender: FDA-Public Use
  Company Number: SE-B.I. PHARMACEUTICALS,INC./RIDGEFIELD-2012-SW-00239SW

PATIENT
  Sex: Female

DRUGS (1)
  1. PRADAXA [Suspect]
     Dosage: 150 MG
     Route: 048
     Dates: start: 20120208, end: 20120222

REACTIONS (2)
  - DUODENAL ULCER [None]
  - GASTROINTESTINAL HAEMORRHAGE [None]
